FAERS Safety Report 10405731 (Version 1)
Quarter: 2014Q3

REPORT INFORMATION
  Report Type: Spontaneous
  Country: US (occurrence: None)
  Receive Date: 20140822
  Receipt Date: 20140822
  Transmission Date: 20150326
  Serious: Yes (Hospitalization)
  Sender: FDA-Public Use
  Company Number: None

PATIENT
  Age: 67 Year
  Sex: Male
  Weight: 95.26 kg

DRUGS (14)
  1. CLINDAMYCIN (CLEOCIN) [Concomitant]
  2. DOCUSATE (COLACE) [Concomitant]
  3. HYDROCHOLORTHIAZIDE (HYDRO-DIURIL) [Concomitant]
  4. AMLODIPINE (NORVASC) [Concomitant]
  5. MULTIVITAMIN (HEXAVITAMIN) [Concomitant]
  6. DALTEPARIN (FRAGMIN) [Concomitant]
  7. ERLOTINIB [Suspect]
     Active Substance: ERLOTINIB
     Indication: LUNG ADENOCARCINOMA
     Dosage: 150 MG DAYS 1-7 OFF 4 DAYS
     Dates: start: 20140731, end: 20140815
  8. ASPIRIN EC [Concomitant]
     Active Substance: ASPIRIN
  9. ONDANSETRON (ZOFRAN) [Concomitant]
  10. PANTOPRAZOLE (PROTONIX) [Concomitant]
  11. PIPERACILLIN/TAZOBACTAM (ZOSYN) [Concomitant]
  12. IRBESARTAN (AVAPRO) [Concomitant]
  13. POTASSIUM CHLORIDE (KLOR-CON M20) [Concomitant]
  14. VANCOMYCIN (VANCOCIN) [Concomitant]

REACTIONS (7)
  - Feeling hot [None]
  - Oedema peripheral [None]
  - Systemic inflammatory response syndrome [None]
  - Chills [None]
  - Leukocytosis [None]
  - Tachycardia [None]
  - Pyrexia [None]

NARRATIVE: CASE EVENT DATE: 20140815
